FAERS Safety Report 8989878 (Version 1)
Quarter: 2012Q4

REPORT INFORMATION
  Report Type: 
  Country: US (occurrence: US)
  Receive Date: 20121228
  Receipt Date: 20121228
  Transmission Date: 20130627
  Serious: Yes (Death)
  Sender: FDA-Public Use
  Company Number: US-GLAXOSMITHKLINE-A1006560A

PATIENT
  Age: 47 Year
  Sex: Female

DRUGS (10)
  1. VOTRIENT [Suspect]
     Indication: PRODUCT USED FOR UNKNOWN INDICATION
     Dosage: 800MG Per day
     Route: 048
  2. METFORMIN [Concomitant]
  3. BENAZEPRIL + HYDROCHLOROTHIAZIDE [Concomitant]
  4. VERAPAMIL [Concomitant]
  5. PRAVASTATIN [Concomitant]
  6. NIASPAN ER [Concomitant]
  7. VITAMIN D [Concomitant]
  8. HYDROCODONE + ACETAMINOPHEN [Concomitant]
  9. SULFISOXAZOLE [Concomitant]
  10. IRON [Concomitant]

REACTIONS (1)
  - Death [Fatal]
